FAERS Safety Report 5684187-9 (Version None)
Quarter: 2008Q1

REPORT INFORMATION
  Report Type: 
  Country: None (occurrence: None)
  Receive Date: 20080328
  Receipt Date: 20070827
  Transmission Date: 20080703
  Serious: No
  Sender: FDA-Public Use
  Company Number: US-AMGEN-US240358

PATIENT
  Sex: Male
  Weight: 75.8 kg

DRUGS (10)
  1. NEULASTA [Suspect]
     Indication: CHEMOTHERAPY
     Route: 058
     Dates: start: 20070820
  2. CISPLATIN [Suspect]
     Route: 042
     Dates: start: 20070805
  3. ETOPOSIDE [Suspect]
     Route: 065
  4. ALOXI [Concomitant]
     Route: 065
     Dates: start: 20070805
  5. DEXAMETHASONE TAB [Concomitant]
     Route: 065
  6. EMEND [Concomitant]
     Route: 065
  7. ASPIRIN [Concomitant]
     Route: 065
  8. METOPROLOL TARTRATE [Concomitant]
     Route: 065
  9. LIPITOR [Concomitant]
     Route: 065
  10. COMPAZINE [Concomitant]
     Route: 065

REACTIONS (11)
  - ALOPECIA [None]
  - DIARRHOEA [None]
  - FATIGUE [None]
  - HEART RATE INCREASED [None]
  - INSOMNIA [None]
  - MUSCLE SPASMS [None]
  - MYALGIA [None]
  - NAUSEA [None]
  - PAIN IN EXTREMITY [None]
  - PARAESTHESIA [None]
  - PYREXIA [None]
